FAERS Safety Report 10424717 (Version 2)
Quarter: 2014Q3

REPORT INFORMATION
  Report Type: Spontaneous
  Country: BR (occurrence: BR)
  Receive Date: 20140902
  Receipt Date: 20140916
  Transmission Date: 20150326
  Serious: Yes (Life-Threatening, Hospitalization, Other)
  Sender: FDA-Public Use
  Company Number: BR-JNJFOC-20140825744

PATIENT

DRUGS (1)
  1. INFLIXIMAB, RECOMBINANT [Suspect]
     Active Substance: INFLIXIMAB
     Indication: PSORIASIS
     Route: 042

REACTIONS (8)
  - Injection site reaction [Unknown]
  - Adverse event [Unknown]
  - Adverse drug reaction [Unknown]
  - Neoplasm malignant [Unknown]
  - Metabolic disorder [Unknown]
  - Hypersensitivity [Unknown]
  - Infection [Unknown]
  - Cardiovascular disorder [Unknown]
